FAERS Safety Report 6711783-X (Version None)
Quarter: 2010Q2

REPORT INFORMATION
  Report Type: 
  Country: None (occurrence: None)
  Receive Date: 20100505
  Receipt Date: 20100427
  Transmission Date: 20101027
  Serious: Yes (Hospitalization)
  Sender: FDA-Public Use
  Company Number: B0650746A

PATIENT
  Sex: Male

DRUGS (9)
  1. AVANDAMET [Suspect]
     Dosage: 8MG PER DAY
     Route: 048
     Dates: start: 20070907, end: 20100121
  2. METFORMIN HCL [Concomitant]
  3. ASPIRIN [Concomitant]
  4. LUVION [Concomitant]
  5. LASIX [Concomitant]
  6. ALLOPURINOL [Concomitant]
  7. TAREG [Concomitant]
  8. CARDURA [Concomitant]
  9. BISOPROLOL FUMARATE [Concomitant]

REACTIONS (2)
  - DYSPNOEA AT REST [None]
  - OEDEMA PERIPHERAL [None]
